FAERS Safety Report 5827408-1 (Version None)
Quarter: 2008Q3

REPORT INFORMATION
  Report Type: 
  Country: None (occurrence: None)
  Receive Date: 20080730
  Receipt Date: 20080721
  Transmission Date: 20090109
  Serious: Yes (Hospitalization)
  Sender: FDA-Public Use
  Company Number: US-TEVA-174803USA

PATIENT
  Age: 51 Year
  Sex: Female

DRUGS (4)
  1. OXCARBAZEPINE TABLETS, 150MG, 300MG AND 600MG [Suspect]
     Indication: MANIA
  2. VALPROATE SODIUM [Interacting]
  3. CLONAZEPAM [Concomitant]
  4. METFORMIN HCL [Concomitant]

REACTIONS (6)
  - ANTIPSYCHOTIC DRUG LEVEL INCREASED [None]
  - CATATONIA [None]
  - DECREASED ACTIVITY [None]
  - DRUG INTERACTION [None]
  - SPEECH DISORDER [None]
  - THOUGHT BLOCKING [None]
